FAERS Safety Report 20161006 (Version 1)
Quarter: 2021Q4

REPORT INFORMATION
  Report Type: Spontaneous
  Country: NL (occurrence: NL)
  Receive Date: 20211208
  Receipt Date: 20211208
  Transmission Date: 20220303
  Serious: Yes (Other)
  Sender: FDA-Public Use
  Company Number: NL-BRISTOL-MYERS SQUIBB COMPANY-BMS-2021-109114

PATIENT
  Age: 74 Year
  Sex: Male
  Weight: 98 kg

DRUGS (2)
  1. AMLODIPINE [Suspect]
     Active Substance: AMLODIPINE BESYLATE
     Indication: Hypertension
     Dosage: UNK
     Route: 065
     Dates: start: 202110, end: 202110
  2. ELIQUIS [Suspect]
     Active Substance: APIXABAN
     Indication: Cerebrovascular accident prophylaxis
     Dosage: 10 MILLIGRAM, QD (5 MILLIGRAM, BID)
     Route: 065
     Dates: start: 20210823

REACTIONS (6)
  - Erectile dysfunction [Unknown]
  - Erythema [Unknown]
  - Feeling hot [Unknown]
  - Diplopia [Unknown]
  - Myalgia [Unknown]
  - Accidental overdose [Unknown]

NARRATIVE: CASE EVENT DATE: 20211001
